FAERS Safety Report 8363967-5 (Version None)
Quarter: 2012Q2

REPORT INFORMATION
  Report Type: 
  Country: None (occurrence: None)
  Receive Date: 20120516
  Receipt Date: 20120509
  Transmission Date: 20120825
  Serious: Yes (Hospitalization, Other)
  Sender: FDA-Public Use
  Company Number: US-PFIZER INC-2012091478

PATIENT
  Sex: Female

DRUGS (3)
  1. LYRICA [Suspect]
     Dosage: UNK
  2. LYRICA [Suspect]
     Dosage: 75 MG, 3X/DAY
  3. LYRICA [Suspect]
     Dosage: 75 MG, 2X/DAY

REACTIONS (3)
  - ACCIDENT [None]
  - FEELING ABNORMAL [None]
  - BREAST CANCER [None]
